FAERS Safety Report 8041193-7 (Version None)
Quarter: 2012Q1

REPORT INFORMATION
  Report Type: 
  Country: None (occurrence: None)
  Receive Date: 20120112
  Receipt Date: 20120105
  Transmission Date: 20120608
  Serious: Yes (Hospitalization, Other)
  Sender: FDA-Public Use
  Company Number: US-JNJFOC-20110807381

PATIENT
  Sex: Female

DRUGS (31)
  1. LEVAQUIN [Suspect]
     Route: 048
     Dates: start: 20101201
  2. HYDROCODONE BITARTRATE [Concomitant]
     Indication: PAIN
     Route: 065
  3. VALIUM [Concomitant]
     Indication: ANXIETY
     Route: 065
  4. CELEBREX [Concomitant]
     Indication: PAIN
     Route: 065
  5. DILAUDID [Concomitant]
     Indication: PAIN
     Route: 065
  6. REGLAN [Concomitant]
     Indication: MULTIPLE ALLERGIES
     Route: 065
  7. AMBIEN [Concomitant]
     Indication: SLEEP APNOEA SYNDROME
     Route: 065
  8. LOMOTIL [Concomitant]
     Indication: DIARRHOEA
     Route: 065
  9. LEVAQUIN [Suspect]
     Indication: CHRONIC OBSTRUCTIVE PULMONARY DISEASE
     Route: 048
  10. LORCET-HD [Concomitant]
     Indication: PAIN
     Route: 065
  11. SYNTHROID [Concomitant]
     Indication: HYPOTHYROIDISM
     Route: 065
  12. ZITHROMAX [Concomitant]
     Indication: INFECTION
     Route: 065
  13. FLEXERIL [Concomitant]
     Indication: MUSCLE RELAXANT THERAPY
     Route: 065
  14. VISTARIL [Concomitant]
     Indication: MULTIPLE ALLERGIES
     Route: 065
  15. CEPHADYN [Concomitant]
     Indication: PAIN
     Route: 065
  16. NAPROSYN [Concomitant]
     Indication: INFLAMMATION
     Route: 065
  17. LYRICA [Concomitant]
     Indication: PAIN
     Route: 065
  18. LEVAQUIN [Suspect]
     Indication: BACTERIAL INFECTION
     Route: 048
  19. ADVAIR DISKUS 100/50 [Suspect]
     Indication: CHRONIC OBSTRUCTIVE PULMONARY DISEASE
  20. PHENERGAN [Concomitant]
     Indication: MULTIPLE ALLERGIES
     Route: 065
  21. LEVAQUIN [Suspect]
     Route: 048
     Dates: start: 20101201
  22. LEVAQUIN [Suspect]
     Route: 048
     Dates: start: 20101201
  23. MEDROL [Suspect]
     Indication: STEROID THERAPY
     Route: 048
  24. NEXIUM [Concomitant]
     Indication: GASTROOESOPHAGEAL REFLUX DISEASE
     Route: 065
  25. LEVAQUIN [Suspect]
     Indication: BRONCHITIS
     Route: 048
  26. MOBIC [Concomitant]
     Indication: INFLAMMATION
     Route: 065
  27. CLOTRIMAZOLE AND BETAMETHASONE DIPROPIONATE [Suspect]
     Indication: SKIN INFECTION
  28. ATIVAN [Concomitant]
     Indication: ANXIETY
     Route: 065
  29. LEVOTHYROXINE SODIUM [Concomitant]
     Indication: HYPOTHYROIDISM
     Route: 065
  30. CYMBALTA [Concomitant]
     Indication: DEPRESSION
  31. WELLBUTRIN [Concomitant]
     Indication: DEPRESSION
     Route: 065

REACTIONS (3)
  - EPICONDYLITIS [None]
  - ROTATOR CUFF SYNDROME [None]
  - TENDONITIS [None]
